FAERS Safety Report 7006593-2 (Version None)
Quarter: 2010Q3

REPORT INFORMATION
  Report Type: 
  Country: None (occurrence: None)
  Receive Date: 20100921
  Receipt Date: 20100921
  Transmission Date: 20110219
  Serious: Yes (Disabling, Congenital Anomaly)
  Sender: FDA-Public Use
  Company Number: None

PATIENT
  Age: 23 Year
  Sex: Male
  Weight: 63.5036 kg

DRUGS (3)
  1. THORAZINE [Suspect]
     Dosage: 8 TABLETS
  2. BENZTROPINE MESYLATE [Concomitant]
  3. PROPRANOLOL [Concomitant]

REACTIONS (10)
  - ABASIA [None]
  - ABNORMAL FAECES [None]
  - DYSPHEMIA [None]
  - FEELING ABNORMAL [None]
  - MOVEMENT DISORDER [None]
  - PAINFUL DEFAECATION [None]
  - PSYCHOTIC DISORDER [None]
  - SPEECH DISORDER [None]
  - THINKING ABNORMAL [None]
  - TRISMUS [None]
